FAERS Safety Report 7939011-8 (Version None)
Quarter: 2011Q4

REPORT INFORMATION
  Report Type: 
  Country: None (occurrence: None)
  Receive Date: 20111124
  Receipt Date: 20111122
  Transmission Date: 20120403
  Serious: Yes (Other)
  Sender: FDA-Public Use
  Company Number: US-PFIZER INC-2011286098

PATIENT
  Sex: Female

DRUGS (1)
  1. CHANTIX [Suspect]
     Dosage: UNK

REACTIONS (7)
  - MENTAL IMPAIRMENT [None]
  - MENTAL DISORDER [None]
  - HYPERSENSITIVITY [None]
  - GENERAL PHYSICAL CONDITION ABNORMAL [None]
  - RASH GENERALISED [None]
  - BLISTER [None]
  - ABNORMAL BEHAVIOUR [None]
